FAERS Safety Report 9753334 (Version 1)
Quarter: 2013Q4

REPORT INFORMATION
  Report Type: Spontaneous
  Country: US (occurrence: US)
  Receive Date: 20131213
  Receipt Date: 20131213
  Transmission Date: 20140711
  Serious: No
  Sender: FDA-Public Use
  Company Number: US-TEVA-405178USA

PATIENT
  Age: 42 Year
  Sex: Female
  Weight: 75.36 kg

DRUGS (5)
  1. PARAGARD 380A [Suspect]
     Indication: CONTRACEPTION
     Route: 015
     Dates: start: 20120528
  2. VICTOZA [Concomitant]
     Indication: DIABETES MELLITUS
     Dosage: 1.8 MILLIGRAM DAILY;
     Route: 058
  3. METFORMIN [Concomitant]
     Indication: DIABETES MELLITUS
     Dosage: 1500 MILLIGRAM DAILY;
     Route: 048
  4. SINGULAIR [Concomitant]
     Indication: ASTHMA
     Dosage: 10 MILLIGRAM DAILY;
     Route: 048
  5. PRILOSEC [Concomitant]
     Indication: GASTROOESOPHAGEAL REFLUX DISEASE
     Dosage: 40 MILLIGRAM DAILY;
     Route: 048

REACTIONS (4)
  - Menorrhagia [Unknown]
  - Hypomenorrhoea [Unknown]
  - Menstrual disorder [Unknown]
  - Metrorrhagia [Not Recovered/Not Resolved]
